FAERS Safety Report 13763520 (Version 1)
Quarter: 2017Q3

REPORT INFORMATION
  Report Type: Spontaneous
  Country: US (occurrence: US)
  Receive Date: 20170718
  Receipt Date: 20170718
  Transmission Date: 20171127
  Serious: Yes (Hospitalization)
  Sender: FDA-Public Use
  Company Number: US-DEPOMED, INC.-US-2017DEP001419

PATIENT

DRUGS (1)
  1. GRALISE [Suspect]
     Active Substance: GABAPENTIN
     Indication: MIGRAINE WITHOUT AURA
     Dosage: 1800 MG, QD
     Route: 048
     Dates: start: 20170112

REACTIONS (4)
  - Ulcer [Unknown]
  - Diabetic ketoacidosis [Unknown]
  - Hypotension [Unknown]
  - Product use in unapproved indication [Not Recovered/Not Resolved]

NARRATIVE: CASE EVENT DATE: 20170112
